FAERS Safety Report 15611146 (Version 1)
Quarter: 2018Q4

REPORT INFORMATION
  Report Type: Spontaneous
  Country: US (occurrence: US)
  Receive Date: 20181113
  Receipt Date: 20181113
  Transmission Date: 20190205
  Serious: No
  Sender: FDA-Public Use
  Company Number: US-ROCHE-2159993

PATIENT
  Sex: Female
  Weight: 69.92 kg

DRUGS (2)
  1. HERCEPTIN [Suspect]
     Active Substance: TRASTUZUMAB
     Indication: BREAST CANCER
     Dosage: ONGOING: YES
     Route: 065
     Dates: start: 2010
  2. FEMARA [Concomitant]
     Active Substance: LETROZOLE
     Dosage: ONGOING: YES
     Route: 065

REACTIONS (11)
  - Furuncle [Not Recovered/Not Resolved]
  - Ulcer [Not Recovered/Not Resolved]
  - Skin laceration [Recovered/Resolved]
  - Scab [Not Recovered/Not Resolved]
  - Diabetes mellitus [Not Recovered/Not Resolved]
  - Herpes virus infection [Recovered/Resolved]
  - Rash generalised [Not Recovered/Not Resolved]
  - Pruritus [Not Recovered/Not Resolved]
  - Animal scratch [Recovered/Resolved]
  - Head banging [Not Recovered/Not Resolved]
  - Skin wrinkling [Not Recovered/Not Resolved]

NARRATIVE: CASE EVENT DATE: 2014
